FAERS Safety Report 15527130 (Version 7)
Quarter: 2020Q2

REPORT INFORMATION
  Report Type: Report from Study
  Country: GB (occurrence: GB)
  Receive Date: 20181018
  Receipt Date: 20200616
  Transmission Date: 20200713
  Serious: Yes (Other)
  Sender: FDA-Public Use
  Company Number: PHHY2018GB101668

PATIENT
  Sex: Male

DRUGS (7)
  1. NOVOMIX 30 [Concomitant]
     Active Substance: INSULIN ASPART
     Indication: PRODUCT USED FOR UNKNOWN INDICATION
     Dosage: 13 IU, 2X/DAY (TOTAL 26 UNITS PER DAY)
     Route: 065
  2. NOVOMIX 30 [Concomitant]
     Active Substance: INSULIN ASPART
     Dosage: 26 IU, QD (13 IU, 2X/DAY (TOTAL 26 UNITS PER DAY))
     Route: 065
  3. SANDOSTATIN LAR DEPOT [Suspect]
     Active Substance: OCTREOTIDE ACETATE
     Indication: NEUROENDOCRINE TUMOUR
     Dosage: 30 MG, QMO (EVERY 4 WEEKS) (FORMUALTION: POWDER)
     Route: 030
  4. METFORMIN [Suspect]
     Active Substance: METFORMIN HYDROCHLORIDE
     Dosage: 500 MG (2 X 500MG)
     Route: 065
  5. SANDOSTATIN LAR DEPOT [Suspect]
     Active Substance: OCTREOTIDE ACETATE
     Dosage: 30 MG, CYCLIC QMO (EVERY 4 WEEKS)
     Route: 030
  6. METFORMIN [Suspect]
     Active Substance: METFORMIN HYDROCHLORIDE
     Dosage: UNK
     Route: 065
  7. METFORMIN [Suspect]
     Active Substance: METFORMIN HYDROCHLORIDE
     Indication: PRODUCT USED FOR UNKNOWN INDICATION
     Dosage: 1000 MG, QD (500 MG, 2X/DAY )
     Route: 065

REACTIONS (32)
  - Nerve compression [Unknown]
  - Concomitant disease aggravated [Unknown]
  - Anger [Unknown]
  - Malignant neoplasm progression [Unknown]
  - Peritoneal carcinoma metastatic [Unknown]
  - Steatorrhoea [Unknown]
  - Blood glucose fluctuation [Unknown]
  - Rhinorrhoea [Unknown]
  - Nasopharyngitis [Unknown]
  - Abdominal pain [Unknown]
  - Neck pain [Not Recovered/Not Resolved]
  - Musculoskeletal pain [Unknown]
  - Abdominal discomfort [Unknown]
  - Depressed mood [Unknown]
  - Rhinitis [Not Recovered/Not Resolved]
  - Chest discomfort [Unknown]
  - Sensory loss [Unknown]
  - Neuralgia [Unknown]
  - Bursitis [Unknown]
  - Intervertebral disc protrusion [Unknown]
  - Pain in extremity [Unknown]
  - Pain [Unknown]
  - Synovial cyst [Unknown]
  - Oropharyngeal pain [Unknown]
  - Deafness unilateral [Unknown]
  - Nausea [Recovered/Resolved]
  - Musculoskeletal discomfort [Unknown]
  - Limb discomfort [Unknown]
  - Pain in extremity [Not Recovered/Not Resolved]
  - Oral mucosal eruption [Unknown]
  - Diarrhoea [Unknown]
  - Musculoskeletal chest pain [Unknown]
